FAERS Safety Report 21040104 (Version 1)
Quarter: 2022Q3

REPORT INFORMATION
  Report Type: Report from Study
  Country: US (occurrence: US)
  Receive Date: 20220704
  Receipt Date: 20220704
  Transmission Date: 20221026
  Serious: No
  Sender: FDA-Public Use
  Company Number: US-NOVARTISTESTPH-NVSC2022US151159

PATIENT
  Sex: Female

DRUGS (3)
  1. GILENYA [Suspect]
     Active Substance: FINGOLIMOD HYDROCHLORIDE
     Indication: Relapsing-remitting multiple sclerosis
     Dosage: 0.5 MG, QD
     Route: 048
     Dates: start: 20120712
  2. GILENYA [Suspect]
     Active Substance: FINGOLIMOD HYDROCHLORIDE
     Dosage: 0.5 MG, QOD
     Route: 048
     Dates: start: 20220628
  3. GILENYA [Suspect]
     Active Substance: FINGOLIMOD HYDROCHLORIDE
     Dosage: (REDUCE HER DOSE TO EVERY 5 DAYS)
     Route: 065
     Dates: start: 202003

REACTIONS (8)
  - Bursitis [Recovered/Resolved]
  - Paraesthesia [Recovering/Resolving]
  - Hypoaesthesia [Recovered/Resolved]
  - Skin tightness [Recovered/Resolved]
  - Limb discomfort [Recovered/Resolved]
  - Pain [Recovered/Resolved]
  - Endometriosis [Recovered/Resolved]
  - Off label use [Recovered/Resolved]

NARRATIVE: CASE EVENT DATE: 20180101
